FAERS Safety Report 7039866-8 (Version None)
Quarter: 2010Q3

REPORT INFORMATION
  Report Type: 
  Country: None (occurrence: None)
  Receive Date: 20100927
  Receipt Date: 20100507
  Transmission Date: 20110219
  Serious: Yes (Hospitalization)
  Sender: FDA-Public Use
  Company Number: GAM-092-10-US

PATIENT
  Age: 78 Year
  Sex: Female

DRUGS (1)
  1. OCTAGAM [Suspect]
     Indication: POLYNEUROPATHY IDIOPATHIC PROGRESSIVE
     Dosage: 35GM
     Dates: start: 20100504, end: 20100505

REACTIONS (9)
  - ASTHENIA [None]
  - BLOOD PRESSURE INCREASED [None]
  - DIZZINESS [None]
  - GAIT DISTURBANCE [None]
  - MALAISE [None]
  - NAUSEA [None]
  - PALLOR [None]
  - VISUAL IMPAIRMENT [None]
  - VOMITING [None]
